FAERS Safety Report 10380515 (Version 1)
Quarter: 2014Q1

REPORT INFORMATION
  Report Type: Spontaneous
  Country: US (occurrence: None)
  Receive Date: 20140306
  Receipt Date: 20140306
  Transmission Date: 20141002
  Serious: Yes (Other)
  Sender: FDA-Public Use
  Company Number: 163-21880-13100454

PATIENT
  Age: 54 Year
  Sex: Male

DRUGS (4)
  1. REVLIMID (LENALIDOMIDE) (10 MILLIGRAM, CAPSULES) [Suspect]
     Indication: MONOCLONAL GAMMOPATHY
     Dosage: 21 IN 28 D
     Route: 048
     Dates: start: 20130909, end: 20130927
  2. LYRICA (PREGABALIN) [Concomitant]
  3. LOSARTAN [Concomitant]
  4. CYMBALTA [Concomitant]

REACTIONS (2)
  - Disturbance in attention [None]
  - Fatigue [None]
